FAERS Safety Report 23049726 (Version 2)
Quarter: 2023Q4

REPORT INFORMATION
  Report Type: Report from Study
  Country: CA (occurrence: CA)
  Receive Date: 20231010
  Receipt Date: 20231104
  Transmission Date: 20240110
  Serious: Yes (Other)
  Sender: FDA-Public Use
  Company Number: CA-002147023-NVSC2022CA275434

PATIENT
  Age: 44 Year
  Sex: Male
  Weight: 71 kg

DRUGS (2)
  1. MAYZENT [Suspect]
     Active Substance: SIPONIMOD
     Indication: Secondary progressive multiple sclerosis
     Dosage: 2 MG, QD
     Route: 048
     Dates: start: 20220701
  2. MAYZENT [Suspect]
     Active Substance: SIPONIMOD
     Dosage: UNK
     Route: 048
     Dates: start: 20230620, end: 20230725

REACTIONS (6)
  - Expanded disability status scale score increased [Unknown]
  - Condition aggravated [Unknown]
  - Gait disturbance [Unknown]
  - Fatigue [Recovered/Resolved]
  - Muscle disorder [Unknown]
  - Peroneal nerve palsy [Unknown]

NARRATIVE: CASE EVENT DATE: 20221121
